FAERS Safety Report 14084462 (Version 2)
Quarter: 2018Q1

REPORT INFORMATION
  Report Type: Spontaneous
  Country: FR (occurrence: FR)
  Receive Date: 20171013
  Receipt Date: 20180102
  Transmission Date: 20180508
  Serious: Yes (Other)
  Sender: FDA-Public Use
  Company Number: FR-MERCK KGAA-2029867

PATIENT
  Age: 60 Year
  Sex: Male

DRUGS (3)
  1. NOVOTHYROX [Suspect]
     Active Substance: LEVOTHYROXINE SODIUM
     Indication: THYROIDECTOMY
     Route: 048
     Dates: end: 20170901
  2. NOVOTHYROX [Suspect]
     Active Substance: LEVOTHYROXINE SODIUM
     Route: 048
     Dates: start: 20170702, end: 20170825
  3. ALLOPURINOL. [Concomitant]
     Active Substance: ALLOPURINOL
     Dates: start: 20170109

REACTIONS (11)
  - Abdominal discomfort [Unknown]
  - Head discomfort [Unknown]
  - Lacrimation increased [None]
  - Hypothyroidism [Not Recovered/Not Resolved]
  - Loss of personal independence in daily activities [None]
  - Rhinorrhoea [None]
  - General physical health deterioration [None]
  - Blood thyroid stimulating hormone increased [Recovered/Resolved]
  - Discomfort [Unknown]
  - Personal relationship issue [None]
  - Malaise [Not Recovered/Not Resolved]

NARRATIVE: CASE EVENT DATE: 2017
